FAERS Safety Report 9824185 (Version 1)
Quarter: 2014Q1

REPORT INFORMATION
  Report Type: Spontaneous
  Country: GB (occurrence: GB)
  Receive Date: 20140116
  Receipt Date: 20140116
  Transmission Date: 20141002
  Serious: Yes (Other)
  Sender: FDA-Public Use
  Company Number: GB-GLAXOSMITHKLINE-B0960605A

PATIENT
  Age: 74 Year
  Sex: Female

DRUGS (4)
  1. OMEGA-3-ACID ETHYL ESTERS [Suspect]
     Indication: PRODUCT USED FOR UNKNOWN INDICATION
     Route: 048
  2. GINKGO BILOBA [Suspect]
     Indication: PRODUCT USED FOR UNKNOWN INDICATION
  3. GLUCOSAMINE SULFATE [Suspect]
     Indication: PRODUCT USED FOR UNKNOWN INDICATION
  4. GABAPENTIN [Concomitant]

REACTIONS (3)
  - Neuropathy peripheral [Recovered/Resolved]
  - Metal poisoning [Recovered/Resolved]
  - Overdose [Recovered/Resolved]
